FAERS Safety Report 8507956-6 (Version None)
Quarter: 2012Q3

REPORT INFORMATION
  Report Type: 
  Country: None (occurrence: None)
  Receive Date: 20120713
  Receipt Date: 20120709
  Transmission Date: 20120928
  Serious: Yes (Hospitalization)
  Sender: FDA-Public Use
  Company Number: US-GENZYME-CAMP-1002210

PATIENT
  Sex: Female
  Weight: 64.4 kg

DRUGS (27)
  1. ALEMTUZUMAB [Suspect]
     Indication: MULTIPLE SCLEROSIS
     Dosage: 12 MG, QD
     Route: 042
     Dates: start: 20110622, end: 20110624
  2. ZOLOFT [Concomitant]
     Indication: ANXIETY
     Dosage: 100 MG, QD
     Route: 048
     Dates: start: 20110728
  3. FENTANYL [Concomitant]
     Indication: BACK PAIN
  4. METHYLPREDNISOLONE [Concomitant]
     Indication: PRODUCT USED FOR UNKNOWN INDICATION
     Dosage: 1000 MG, QD
     Dates: start: 20120217, end: 20120221
  5. BACLOFEN [Concomitant]
     Indication: MUSCLE SPASMS
     Dosage: 60 MG, QD
     Route: 048
     Dates: start: 20091207
  6. FERROUS GLUCONATE [Concomitant]
     Indication: MEDICAL DIET
     Dosage: 324 MG, QW
     Route: 048
     Dates: start: 20101110
  7. HYDROCODONE BITARTRATE AND ACETAMINOPHEN [Concomitant]
     Indication: BACK PAIN
  8. OMEPRAZOLE [Concomitant]
     Indication: GASTROOESOPHAGEAL REFLUX DISEASE
     Dosage: 40 MG, QD
     Route: 048
     Dates: start: 20110722
  9. ALBUTEROL [Concomitant]
     Indication: ASTHMA
     Dosage: 2 UNK, PRN
     Route: 050
     Dates: start: 20090721
  10. METHYLPREDNISOLONE [Concomitant]
     Dosage: 1 G, QD
     Route: 042
     Dates: start: 20110622, end: 20110624
  11. VITAMIN B-12 [Concomitant]
     Indication: MEDICAL DIET
     Dosage: 1 ML,MONTHLY
     Route: 048
     Dates: start: 20071201
  12. HYDROCODONE BITARTRATE AND ACETAMINOPHEN [Concomitant]
     Indication: PAIN
     Dosage: 5/500 MG, PRN
     Route: 048
     Dates: start: 20100710
  13. HYDROCODONE BITARTRATE AND ACETAMINOPHEN [Concomitant]
     Indication: PAIN IN EXTREMITY
     Dosage: 7.5/500 MG, PRN
     Route: 048
     Dates: start: 20120409
  14. REGLAN [Concomitant]
     Indication: NAUSEA
     Dosage: 10 MG, TID
     Route: 048
     Dates: start: 20120401
  15. CALCIUM CARBONATE W [Concomitant]
     Indication: MEDICAL DIET
     Dosage: 600 MG, BID
     Route: 048
     Dates: start: 20110314
  16. NITROGLYCERIN [Concomitant]
     Indication: ANGINA PECTORIS
     Dosage: 0.4 MG, PRN
     Route: 048
     Dates: start: 20110314
  17. VALIUM [Concomitant]
     Indication: ANXIETY
     Dosage: 5 MG, PRN
     Route: 048
     Dates: start: 20090721
  18. FLEXERIL [Concomitant]
     Indication: PAIN IN EXTREMITY
     Dosage: 10 MG, PRN
     Route: 048
     Dates: start: 20110708
  19. BACLOFEN [Concomitant]
     Dosage: 30 MG, TID
     Route: 048
     Dates: start: 20120314
  20. METHYLPREDNISOLONE [Concomitant]
     Indication: MULTIPLE SCLEROSIS RELAPSE
     Dosage: 1000 MG, QD
     Route: 042
     Dates: start: 20120415
  21. NITROFURANTOIN [Concomitant]
     Indication: PRODUCT USED FOR UNKNOWN INDICATION
     Dosage: 30 MG, QD
     Route: 048
  22. AMBIEN [Concomitant]
     Indication: INSOMNIA
     Dosage: 10 MG, PRN
     Route: 048
     Dates: start: 20090101
  23. DIAZEPAM [Concomitant]
     Indication: MUSCLE SPASMS
     Dosage: 5 MG, BID
     Route: 048
     Dates: start: 20120319
  24. FENTANYL [Concomitant]
     Indication: PAIN IN EXTREMITY
     Dosage: 75 MCG, QD
     Route: 061
     Dates: start: 20120412
  25. CYMBALTA [Concomitant]
     Indication: PAIN
     Dosage: 30 MG, QD
     Route: 048
     Dates: start: 20120416
  26. ZOFRAN [Concomitant]
     Indication: VOMITING
     Dosage: 8 MG, PRN
     Route: 048
  27. NEXIUM [Concomitant]
     Indication: GASTROOESOPHAGEAL REFLUX DISEASE
     Dosage: 40 MG, QD
     Route: 048

REACTIONS (1)
  - HYPERTHYROIDISM [None]
